FAERS Safety Report 7683632-7 (Version None)
Quarter: 2011Q3

REPORT INFORMATION
  Report Type: 
  Country: None (occurrence: None)
  Receive Date: 20110815
  Receipt Date: 20110804
  Transmission Date: 20111222
  Serious: Yes (Other)
  Sender: FDA-Public Use
  Company Number: US-ASTRAZENECA-2011SE18647

PATIENT
  Age: 47 Year
  Sex: Female
  Weight: 54.4 kg

DRUGS (6)
  1. SOMA [Concomitant]
     Indication: MUSCLE SPASMS
  2. LIDODERM [Concomitant]
     Indication: PAIN
     Route: 061
  3. VALIUM [Concomitant]
     Indication: MUSCLE SPASMS
  4. SEROQUEL [Suspect]
     Indication: BIPOLAR DISORDER
     Route: 048
     Dates: start: 20030101
  5. SEROQUEL [Suspect]
     Indication: POST-TRAUMATIC STRESS DISORDER
     Route: 048
     Dates: start: 20030101
  6. NORCOR [Concomitant]
     Indication: PAIN

REACTIONS (19)
  - AMNESIA [None]
  - BREAST CANCER [None]
  - HYPERHIDROSIS [None]
  - MUSCULOSKELETAL DISCOMFORT [None]
  - OVARIAN CYST [None]
  - NIGHTMARE [None]
  - SOMNOLENCE [None]
  - OVARIAN OPERATION [None]
  - STRESS [None]
  - UTERINE DISORDER [None]
  - PNEUMONIA [None]
  - FALL [None]
  - NECK INJURY [None]
  - DRUG DOSE OMISSION [None]
  - CERVICAL VERTEBRAL FRACTURE [None]
  - OPERATIVE HAEMORRHAGE [None]
  - OFF LABEL USE [None]
  - INSOMNIA [None]
  - WEIGHT FLUCTUATION [None]
